FAERS Safety Report 5657564-X (Version None)
Quarter: 2008Q1

REPORT INFORMATION
  Report Type: 
  Country: None (occurrence: None)
  Receive Date: 20080219
  Receipt Date: 20071127
  Transmission Date: 20080703
  Serious: No
  Sender: FDA-Public Use
  Company Number: WAES 0711USA05061

PATIENT
  Age: 60 Year
  Sex: Female

DRUGS (4)
  1. JANUVIA [Suspect]
     Indication: TYPE 2 DIABETES MELLITUS
     Dosage: 100 MG/DAILY/PO
     Route: 048
     Dates: start: 20070827
  2. BENICAR [Concomitant]
  3. TOPROL-XL [Concomitant]
  4. GLIPIZIDE [Concomitant]

REACTIONS (2)
  - BACK PAIN [None]
  - RHINORRHOEA [None]
